FAERS Safety Report 9888225 (Version 4)
Quarter: 2014Q3

REPORT INFORMATION
  Report Type: Spontaneous
  Country: US (occurrence: US)
  Receive Date: 20140211
  Receipt Date: 20140702
  Transmission Date: 20150326
  Serious: Yes (Hospitalization, Other)
  Sender: FDA-Public Use
  Company Number: US-009507513-1201USA00761

PATIENT
  Sex: Female
  Weight: 67.12 kg

DRUGS (6)
  1. LORAZEPAM. [Concomitant]
     Active Substance: LORAZEPAM
     Dosage: UNK
     Dates: start: 200010, end: 2008
  2. FOSAMAX [Suspect]
     Active Substance: ALENDRONATE SODIUM
     Indication: OSTEOPOROSIS
     Dosage: 10 MG, QD
     Route: 048
     Dates: start: 19970625, end: 200107
  3. FOSAMAX [Suspect]
     Active Substance: ALENDRONATE SODIUM
     Dosage: 70 MG, QW
     Route: 048
     Dates: start: 200109, end: 200802
  4. ATIVAN [Concomitant]
     Active Substance: LORAZEPAM
     Dosage: UNK
     Dates: start: 200010, end: 2008
  5. BONIVA [Suspect]
     Active Substance: IBANDRONATE SODIUM
     Indication: OSTEOPOROSIS
     Dosage: 150 MG, UNK
     Route: 048
     Dates: start: 200802, end: 200906
  6. ZOLOFT [Concomitant]
     Active Substance: SERTRALINE HYDROCHLORIDE
     Dosage: UNK
     Dates: start: 200010, end: 2008

REACTIONS (25)
  - Spinal operation [Unknown]
  - Senile osteoporosis [Unknown]
  - Ulna fracture [Unknown]
  - Peripheral swelling [Unknown]
  - Upper limb fracture [Unknown]
  - Cardiac failure [Unknown]
  - Arthropod bite [Unknown]
  - Femur fracture [Recovering/Resolving]
  - Fracture nonunion [Unknown]
  - Fall [Unknown]
  - Weight decreased [Unknown]
  - Hypothyroidism [Unknown]
  - Vitamin D deficiency [Unknown]
  - Generalised anxiety disorder [Unknown]
  - Femur fracture [Recovered/Resolved]
  - Hepatomegaly [Unknown]
  - Back pain [Unknown]
  - Pain in extremity [Unknown]
  - Open reduction of fracture [Unknown]
  - Osteoarthritis [Unknown]
  - Ulna fracture [Not Recovered/Not Resolved]
  - Intramedullary rod insertion [Unknown]
  - Device breakage [Unknown]
  - Avulsion fracture [Unknown]
  - Rales [Unknown]

NARRATIVE: CASE EVENT DATE: 20030612
